FAERS Safety Report 14840318 (Version 1)
Quarter: 2018Q2

REPORT INFORMATION
  Report Type: Spontaneous
  Country: DE (occurrence: DE)
  Receive Date: 20180503
  Receipt Date: 20180503
  Transmission Date: 20180711
  Serious: Yes (Hospitalization)
  Sender: FDA-Public Use
  Company Number: DE-ORION CORPORATION ORION PHARMA-18_00003472

PATIENT
  Age: 80 Year
  Sex: Male

DRUGS (13)
  1. MOLSIDOMIN [Suspect]
     Active Substance: MOLSIDOMINE
     Dosage: 0-0-1-0
     Route: 065
  2. CINNARIZIN [Concomitant]
     Dosage: 1-0-0-0
     Route: 065
  3. DIMENHYDRINAT [Concomitant]
     Active Substance: DIMENHYDRINATE
     Dosage: 1-0-0-0
     Route: 065
  4. MADOPAR LT [Suspect]
     Active Substance: BENSERAZIDE HYDROCHLORIDE\LEVODOPA
     Dosage: STRENGTH: 100/25 MG, 1-0-0-0
     Route: 065
  5. ACETYLSALICYLIC ACID [Concomitant]
     Active Substance: ASPIRIN
     Dosage: 0-1-0-0
     Route: 065
  6. REPAGLINIDE. [Concomitant]
     Active Substance: REPAGLINIDE
     Dosage: 1-1-1-0
     Route: 065
  7. STALEVO [Suspect]
     Active Substance: CARBIDOPA\ENTACAPONE\LEVODOPA
     Dosage: 1-1-1-1; STRENGTH: 100/25/200 MG
     Route: 065
  8. RASAGILINE. [Suspect]
     Active Substance: RASAGILINE
     Dosage: 1-0-0-0
     Route: 065
  9. SIMVASTATIN. [Concomitant]
     Active Substance: SIMVASTATIN
     Dosage: 0-0-1-0
     Route: 065
  10. PANTOPRAZOL [Concomitant]
     Active Substance: PANTOPRAZOLE SODIUM
     Dosage: 1-0-0-0
     Route: 065
  11. COLECALCIFEROL [Concomitant]
     Active Substance: CHOLECALCIFEROL
     Dosage: 1-0-0-0
     Route: 065
  12. ROTIGOTINE [Suspect]
     Active Substance: ROTIGOTINE
     Dosage: 1-0-0-0
     Route: 030
  13. NACOM RETARD [Suspect]
     Active Substance: CARBIDOPA\LEVODOPA
     Dosage: 0-0-0-1; STRENGTH: 200/50 MG
     Route: 065

REACTIONS (2)
  - Dysarthria [Unknown]
  - Loss of consciousness [Unknown]
